FAERS Safety Report 12635291 (Version 1)
Quarter: 2016Q3

REPORT INFORMATION
  Report Type: Spontaneous
  Country: US (occurrence: US)
  Receive Date: 20160808
  Receipt Date: 20160808
  Transmission Date: 20161109
  Serious: No
  Sender: FDA-Public Use
  Company Number: GXBR2015US002572

PATIENT
  Sex: Female
  Weight: 82.99 kg

DRUGS (3)
  1. NYSTATIN+TRIAMCINOLONE [Suspect]
     Active Substance: NYSTATIN\TRIAMCINOLONE ACETONIDE
     Indication: VULVOVAGINAL DISCOMFORT
  2. LORAZEPAM. [Concomitant]
     Active Substance: LORAZEPAM
     Indication: SLEEP DISORDER
     Dosage: 2 MG, QHS
     Route: 048
  3. NYSTATIN+TRIAMCINOLONE [Suspect]
     Active Substance: NYSTATIN\TRIAMCINOLONE ACETONIDE
     Indication: VULVOVAGINAL PRURITUS
     Dosage: UNK DF, QD
     Route: 061
     Dates: start: 20151103

REACTIONS (2)
  - Expired product administered [Not Recovered/Not Resolved]
  - Drug dispensing error [Not Recovered/Not Resolved]
